FAERS Safety Report 4295228-8 (Version None)
Quarter: 2004Q1

REPORT INFORMATION
  Report Type: 
  Country: None (occurrence: None)
  Receive Date: 20040216
  Receipt Date: 20030414
  Transmission Date: 20041129
  Serious: Yes (Other)
  Sender: FDA-Public Use
  Company Number: US-GLAXOSMITHKLINE-A0405196A

PATIENT
  Age: 55 Year
  Sex: Female

DRUGS (5)
  1. LAMICTAL [Suspect]
     Dosage: 200MG THREE TIMES PER DAY
     Route: 048
  2. LITHIUM CARBONATE [Suspect]
     Dosage: 450MG THREE TIMES PER DAY
     Route: 048
  3. ZYPREXA [Concomitant]
     Dates: end: 20020601
  4. WELLBUTRIN [Concomitant]
     Dosage: 150MG TWICE PER DAY
     Route: 048
  5. LORAZEPAM [Concomitant]
     Dosage: .5MG AS REQUIRED
     Route: 048

REACTIONS (1)
  - EXTRAPYRAMIDAL DISORDER [None]
